FAERS Safety Report 23116981 (Version 1)
Quarter: 2023Q4

REPORT INFORMATION
  Report Type: Spontaneous
  Country: US (occurrence: None)
  Receive Date: 20231027
  Receipt Date: 20231027
  Transmission Date: 20240109
  Serious: Yes (Hospitalization)
  Sender: FDA-Public Use
  Company Number: None

PATIENT
  Age: 11 Year
  Sex: Male
  Weight: 48 kg

DRUGS (3)
  1. ASPARLAS [Suspect]
     Active Substance: CALASPARGASE PEGOL-MKNL
     Indication: Leukaemia
     Route: 042
     Dates: start: 20230331, end: 20230331
  2. PREDNISONE [Concomitant]
     Active Substance: PREDNISONE
     Dates: start: 20230511, end: 20230513
  3. MERCAPTOPURINE [Concomitant]
     Active Substance: MERCAPTOPURINE
     Dates: start: 20230511, end: 20230513

REACTIONS (2)
  - Pancreatitis [None]
  - Hepatic steatosis [None]

NARRATIVE: CASE EVENT DATE: 20230513
